FAERS Safety Report 4490087-2 (Version None)
Quarter: 2004Q4

REPORT INFORMATION
  Report Type: 
  Country: None (occurrence: None)
  Receive Date: 20041027
  Receipt Date: 20041014
  Transmission Date: 20050328
  Serious: Yes (Other)
  Sender: FDA-Public Use
  Company Number: 2004077839

PATIENT
  Age: 81 Year
  Sex: Male
  Weight: 77.1115 kg

DRUGS (1)
  1. SUDAFED 12 HOUR [Suspect]
     Indication: RHINORRHOEA
     Dosage: 2 CAPLETS 10/2/04 + 1 CAPLET
     Dates: start: 20041002, end: 20041003

REACTIONS (2)
  - DYSURIA [None]
  - URINARY TRACT INFECTION [None]
